FAERS Safety Report 9601379 (Version 3)
Quarter: 2013Q4

REPORT INFORMATION
  Report Type: Spontaneous
  Country: US (occurrence: US)
  Receive Date: 20131007
  Receipt Date: 20131122
  Transmission Date: 20140711
  Serious: Yes (Hospitalization)
  Sender: FDA-Public Use
  Company Number: US-BIOGENIDEC-2013BI095185

PATIENT
  Age: 58 Year
  Sex: Female
  Weight: 97 kg

DRUGS (12)
  1. TYSABRI [Suspect]
     Indication: MULTIPLE SCLEROSIS
     Route: 042
     Dates: start: 20071221
  2. RHYTHMOL [Concomitant]
     Indication: ATRIAL FLUTTER
     Route: 048
  3. RHYTHMOL [Concomitant]
     Route: 048
  4. ALBUTEROL [Concomitant]
  5. MOMETASONE FUROATE [Concomitant]
  6. ARMODAFINIL [Concomitant]
     Indication: FATIGUE
     Route: 048
  7. ARMODAFINIL [Concomitant]
     Indication: FATIGUE
     Route: 048
  8. ATENOLOL [Concomitant]
     Route: 048
  9. CHOLECALCIFEROL [Concomitant]
     Indication: MULTIPLE SCLEROSIS
  10. CHOLECALCIFEROL [Concomitant]
     Indication: MULTIPLE SCLEROSIS
     Route: 048
  11. CYANOCOBALAMIN [Concomitant]
     Route: 048
  12. POTASSIUM CHLORIDE [Concomitant]
     Route: 048

REACTIONS (3)
  - Deep vein thrombosis [Recovered/Resolved]
  - Pulmonary hypertension [Recovered/Resolved]
  - Pulmonary embolism [Recovered/Resolved]
